FAERS Safety Report 7029726-0 (Version None)
Quarter: 2010Q4

REPORT INFORMATION
  Report Type: 
  Country: None (occurrence: None)
  Receive Date: 20101005
  Receipt Date: 20101005
  Transmission Date: 20110411
  Serious: Yes (Other)
  Sender: FDA-Public Use
  Company Number: None

PATIENT
  Age: 44 Year
  Sex: Female
  Weight: 83.9154 kg

DRUGS (6)
  1. OXYCONTIN [Suspect]
     Indication: NEURALGIA
     Dosage: 40MG 3XDAY PO
     Route: 048
     Dates: start: 20100909, end: 20101004
  2. PERCOCET [Concomitant]
  3. ROBAXIN [Concomitant]
  4. LIDODERM [Concomitant]
  5. MACRODANTIN [Concomitant]
  6. THYROID TAB [Concomitant]

REACTIONS (10)
  - CONDITION AGGRAVATED [None]
  - DIZZINESS [None]
  - FEELING ABNORMAL [None]
  - GASTRIC DISORDER [None]
  - NAUSEA [None]
  - OVERDOSE [None]
  - PAIN [None]
  - PRESYNCOPE [None]
  - PRODUCT FORMULATION ISSUE [None]
  - PRURITUS GENERALISED [None]
